FAERS Safety Report 7917238-9 (Version None)
Quarter: 2011Q4

REPORT INFORMATION
  Report Type: 
  Country: None (occurrence: None)
  Receive Date: 20111116
  Receipt Date: 20111104
  Transmission Date: 20120403
  Serious: Yes (Other)
  Sender: FDA-Public Use
  Company Number: PHFR2011GB04706

PATIENT
  Sex: Female

DRUGS (1)
  1. CLOZARIL [Suspect]
     Indication: SCHIZOPHRENIA
     Dosage: UNK UKN, UNK
     Route: 048
     Dates: start: 20110720, end: 20110809

REACTIONS (8)
  - HYPERTENSION [None]
  - RALES [None]
  - SENSATION OF HEAVINESS [None]
  - TACHYCARDIA [None]
  - ARTHRITIS [None]
  - SEDATION [None]
  - OEDEMA PERIPHERAL [None]
  - CARDIAC DISORDER [None]
